FAERS Safety Report 7675642-0 (Version None)
Quarter: 2011Q3

REPORT INFORMATION
  Report Type: 
  Country: None (occurrence: None)
  Receive Date: 20110810
  Receipt Date: 20110809
  Transmission Date: 20111222
  Serious: Yes (Death, Life-Threatening)
  Sender: FDA-Public Use
  Company Number: JP-PFIZER INC-2011088308

PATIENT
  Age: 78 Year
  Sex: Male

DRUGS (3)
  1. LYRICA [Suspect]
     Indication: NEURALGIA
     Dosage: 75MG A DAY
     Route: 048
     Dates: start: 20110316, end: 20110322
  2. ALPROSTADIL [Concomitant]
     Indication: NEURALGIA
     Dosage: 10 UG, 1X/DAY
     Route: 041
     Dates: start: 20110315, end: 20110322
  3. LYRICA [Suspect]
     Dosage: 150 MG A DAY
     Route: 048
     Dates: start: 20110323, end: 20110325

REACTIONS (2)
  - RESPIRATORY FAILURE [None]
  - INTERSTITIAL LUNG DISEASE [None]
